FAERS Safety Report 10416884 (Version 6)
Quarter: 2017Q1

REPORT INFORMATION
  Report Type: Spontaneous
  Country: US (occurrence: US)
  Receive Date: 20140828
  Receipt Date: 20170124
  Transmission Date: 20170428
  Serious: Yes (Other)
  Sender: FDA-Public Use
  Company Number: US-BAYER-2014-124862

PATIENT
  Sex: Female
  Weight: 97.05 kg

DRUGS (11)
  1. AVELOX [Suspect]
     Active Substance: MOXIFLOXACIN HYDROCHLORIDE
     Indication: UPPER RESPIRATORY TRACT INFECTION
  2. PREDNISONE. [Concomitant]
     Active Substance: PREDNISONE
     Indication: EAR INFECTION
     Dosage: UNK
     Dates: start: 20090814, end: 2014
  3. AVELOX [Suspect]
     Active Substance: MOXIFLOXACIN HYDROCHLORIDE
     Indication: BRONCHITIS
     Dosage: 400 MG, ONCE
     Route: 048
     Dates: start: 20090814
  4. CLARITHROMYCIN. [Concomitant]
     Active Substance: CLARITHROMYCIN
     Dosage: UNK
     Dates: start: 200801, end: 20130122
  5. HYDROCODONE [Concomitant]
     Active Substance: HYDROCODONE
     Indication: NEURALGIA
     Dosage: UNK
     Dates: start: 200408, end: 200612
  6. VITAMIN B12 [Concomitant]
     Active Substance: CYANOCOBALAMIN
     Dosage: UNK
     Dates: start: 201009, end: 201101
  7. AMITRIPTYLINE [Concomitant]
     Active Substance: AMITRIPTYLINE
     Indication: SLEEP DISORDER
     Dosage: UNK
     Dates: start: 2008
  8. MORPHINE [Concomitant]
     Active Substance: MORPHINE
     Dosage: UNK
  9. CIPRO [Suspect]
     Active Substance: CIPROFLOXACIN HYDROCHLORIDE
     Dosage: 500 MG, ONCE
     Route: 048
     Dates: start: 20110407
  10. PREDNISONE. [Concomitant]
     Active Substance: PREDNISONE
     Indication: DEAFNESS
  11. SULFAMETHOXAZOLE W/TRIMETHOPRIM [Concomitant]
     Active Substance: SULFAMETHOXAZOLE\TRIMETHOPRIM
     Dosage: UNK
     Dates: start: 20070102, end: 20120106

REACTIONS (30)
  - Ataxia [None]
  - Cataract nuclear [None]
  - Fatigue [None]
  - Pain [None]
  - Executive dysfunction [None]
  - Peripheral sensorimotor neuropathy [Not Recovered/Not Resolved]
  - Constipation [None]
  - Paraesthesia [None]
  - Muscular weakness [None]
  - Systolic hypertension [None]
  - Hypercholesterolaemia [None]
  - Vaginal haemorrhage [None]
  - Rash [None]
  - Burning sensation [None]
  - Emotional distress [None]
  - Depression [None]
  - Epistaxis [None]
  - Vision blurred [None]
  - Essential tremor [None]
  - Inguinal hernia [None]
  - Neuropathy peripheral [None]
  - Injury [None]
  - Mixed deafness [None]
  - Rhinitis allergic [None]
  - Dyspnoea exertional [None]
  - Lipoma [None]
  - Drug hypersensitivity [None]
  - Disturbance in attention [None]
  - Gait disturbance [None]
  - Otitis media chronic [None]
